FAERS Safety Report 8951396 (Version 1)
Quarter: 2012Q4

REPORT INFORMATION
  Report Type: Report from Study
  Country: CA (occurrence: CA)
  Receive Date: 20121207
  Receipt Date: 20121207
  Transmission Date: 20130627
  Serious: Yes (Other)
  Sender: FDA-Public Use
  Company Number: CA-JNJFOC-20121113401

PATIENT
  Age: 55 Year
  Sex: Female
  Weight: 59.7 kg

DRUGS (6)
  1. REMICADE [Suspect]
     Indication: RHEUMATOID ARTHRITIS
     Route: 042
     Dates: start: 2010
  2. METHOTREXATE [Concomitant]
     Route: 065
  3. FOLIC ACID [Concomitant]
     Route: 065
  4. CALCIUM [Concomitant]
     Route: 065
  5. ALENDRONATE SODIUM/COLECALCIFEROL [Concomitant]
     Route: 065
  6. ESTRADIOL [Concomitant]
     Route: 065

REACTIONS (1)
  - Neoplasm malignant [Recovering/Resolving]
